FAERS Safety Report 9284291 (Version 1)
Quarter: 2013Q2

REPORT INFORMATION
  Report Type: Spontaneous
  Country: US (occurrence: US)
  Receive Date: 20130510
  Receipt Date: 20130510
  Transmission Date: 20140414
  Serious: No
  Sender: FDA-Public Use
  Company Number: US-TEVA-404377USA

PATIENT
  Age: 18 Year
  Sex: Female
  Weight: 61.29 kg

DRUGS (2)
  1. PLAN B ONE-STEP [Suspect]
     Indication: POST COITAL CONTRACEPTION
     Dosage: 1.5 MILLIGRAM DAILY;
     Route: 048
     Dates: start: 20130509, end: 20130509
  2. PARAGARD [Concomitant]
     Indication: CONTRACEPTION
     Dates: start: 201302

REACTIONS (2)
  - Mood altered [Not Recovered/Not Resolved]
  - Feeling hot [Not Recovered/Not Resolved]
